FAERS Safety Report 4338881-2 (Version None)
Quarter: 2004Q2

REPORT INFORMATION
  Report Type: 
  Country: None (occurrence: None)
  Receive Date: 20040409
  Receipt Date: 20040404
  Transmission Date: 20050107
  Serious: Yes (Death, Life-Threatening)
  Sender: FDA-Public Use
  Company Number: 200310018BYL

PATIENT
  Age: 77 Year
  Sex: Female
  Weight: 42 kg

DRUGS (3)
  1. CIPROFLOXACIN [Suspect]
     Indication: PNEUMONIA
     Dosage: 600 MG, TOTAL DAILY, INTRAVENOUS DRIP
     Route: 041
     Dates: start: 20020129, end: 20020204
  2. DIGOSIN [Concomitant]
  3. PENTICILLIN [Concomitant]

REACTIONS (4)
  - DRUG INEFFECTIVE [None]
  - MULTI-ORGAN FAILURE [None]
  - PNEUMONIA [None]
  - RENAL FAILURE ACUTE [None]
